FAERS Safety Report 8989833 (Version 1)
Quarter: 2012Q4

REPORT INFORMATION
  Report Type: 
  Country: US (occurrence: US)
  Receive Date: 20121228
  Receipt Date: 20121228
  Transmission Date: 20130627
  Serious: Yes (Death, Other)
  Sender: FDA-Public Use
  Company Number: US-GLAXOSMITHKLINE-A0640130A

PATIENT
  Age: 46 Year
  Sex: Male
  Weight: 99 kg

DRUGS (21)
  1. FLOLAN [Suspect]
     Indication: PULMONARY HYPERTENSION
     Dosage: 16NGKM Unknown
     Route: 042
     Dates: start: 20060606
  2. INFUSION FLUID [Concomitant]
  3. FOLIC ACID [Concomitant]
     Route: 048
  4. METHADONE [Concomitant]
     Route: 048
  5. VIREAD [Concomitant]
     Dosage: 300MG Per day
     Route: 048
  6. KALETRA [Concomitant]
     Dosage: 1TAB Twice per day
     Route: 048
  7. OXYCONTIN [Concomitant]
     Dosage: 80MG Four times per day
     Route: 048
  8. PROMETHAZINE [Concomitant]
     Dosage: 5MG As required
     Route: 048
  9. LASIX [Concomitant]
     Dosage: 40MG Per day
     Route: 048
  10. ALBUTEROL [Concomitant]
     Dosage: 2PUFF Twice per day
     Route: 055
  11. ALPRAZOLAM [Concomitant]
     Dosage: 1.5MG Four times per day
     Route: 048
  12. THIAMINE [Concomitant]
     Dosage: 100MG Per day
     Route: 048
  13. VITAMIN B COMPLEX [Concomitant]
     Dosage: 1CAP Per day
     Route: 048
  14. CAPSAICIN [Concomitant]
     Route: 061
  15. COLACE [Concomitant]
     Dosage: 100MG Twice per day
     Route: 048
  16. CLONIDINE [Concomitant]
     Dosage: .1MG Per day
     Route: 048
  17. OXYGEN [Concomitant]
     Dosage: 2L Continuous
  18. ZIDOVUDINE [Concomitant]
     Dosage: 300MG Twice per day
     Route: 048
  19. GABAPENTIN [Concomitant]
     Route: 048
  20. PERCOCET [Concomitant]
     Dosage: 4TAB As required
     Route: 048
  21. SODIUM CHLORIDE [Concomitant]

REACTIONS (3)
  - Death [Fatal]
  - Device occlusion [Unknown]
  - Product quality issue [Unknown]
